FAERS Safety Report 17591617 (Version 1)
Quarter: 2020Q1

REPORT INFORMATION
  Report Type: Spontaneous
  Country: US (occurrence: US)
  Receive Date: 20200326
  Receipt Date: 20200326
  Transmission Date: 20200409
  Serious: Yes (Life-Threatening)
  Sender: FDA-Public Use
  Company Number: None

PATIENT
  Age: 56 Year
  Sex: Female
  Weight: 96.16 kg

DRUGS (1)
  1. WARFARIN 5MG [Suspect]
     Active Substance: WARFARIN
     Indication: AORTIC VALVE REPLACEMENT
     Route: 048
     Dates: start: 20120612

REACTIONS (3)
  - Product substitution issue [None]
  - Drug level below therapeutic [None]
  - Toxicity to various agents [None]

NARRATIVE: CASE EVENT DATE: 20131119
